FAERS Safety Report 8480254-5 (Version None)
Quarter: 2012Q2

REPORT INFORMATION
  Report Type: 
  Country: None (occurrence: None)
  Receive Date: 20120629
  Receipt Date: 20120620
  Transmission Date: 20120825
  Serious: Yes (Other)
  Sender: FDA-Public Use
  Company Number: US-ASTRAZENECA-2012SE41661

PATIENT
  Sex: Female

DRUGS (8)
  1. BENADRYL [Concomitant]
  2. SEROQUEL XR [Suspect]
     Route: 048
  3. RISPERDAL [Concomitant]
     Route: 048
     Dates: start: 20020101
  4. SEROQUEL XR [Suspect]
     Indication: BIPOLAR DISORDER
     Route: 048
     Dates: start: 20120404
  5. SEROQUEL XR [Suspect]
     Route: 048
     Dates: end: 20120608
  6. COGENTIN [Concomitant]
  7. ESKALITH [Concomitant]
     Dosage: 450 DAILY
     Route: 048
  8. SAPHRIS [Concomitant]
     Route: 048

REACTIONS (1)
  - TARDIVE DYSKINESIA [None]
